FAERS Safety Report 7642867-X (Version None)
Quarter: 2011Q3

REPORT INFORMATION
  Report Type: 
  Country: None (occurrence: None)
  Receive Date: 20110728
  Receipt Date: 20110719
  Transmission Date: 20111222
  Serious: Yes (Other)
  Sender: FDA-Public Use
  Company Number: IN-MPIJNJ-2011-03130

PATIENT

DRUGS (8)
  1. VELCADE [Suspect]
     Indication: RENAL TRANSPLANT
     Dosage: 1.3 MG/M2, CYCLIC
  2. ANTI-THYMOCYTE GLOBULIN RABBIT NOS [Suspect]
     Indication: RENAL TRANSPLANT
     Dosage: 1.5 MG/KG, CYCLIC
  3. GANCICLOVIR [Concomitant]
     Indication: ANTIVIRAL PROPHYLAXIS
     Dosage: 1 G, UNK
  4. TRIMETHOPRIM + SULFAMETHOXAZOLE [Concomitant]
     Indication: PROPHYLAXIS
     Dosage: UNK
  5. METHYLPREDNISOLONE [Suspect]
     Indication: RENAL TRANSPLANT
     Dosage: 125 MG, CYCLIC
     Route: 042
  6. MYCOPHENOLATE MOFETIL [Suspect]
     Indication: RENAL TRANSPLANT
     Dosage: 500 MG, UNK
  7. IMMUNOGLOBULINS [Suspect]
     Indication: RENAL TRANSPLANT
     Dosage: 5 G, CYCLIC
     Route: 042
  8. FLUCONAZOLE [Concomitant]
     Indication: FUNGAL INFECTION
     Dosage: 100 MG, QD

REACTIONS (1)
  - PULMONARY TUBERCULOSIS [None]
